FAERS Safety Report 5760848-8 (Version None)
Quarter: 2008Q2

REPORT INFORMATION
  Report Type: 
  Country: None (occurrence: None)
  Receive Date: 20080606
  Receipt Date: 20080529
  Transmission Date: 20081010
  Serious: Yes (Other)
  Sender: FDA-Public Use
  Company Number: US-KINGPHARMUSA00001-K200800377

PATIENT
  Age: 78 Year
  Sex: Male

DRUGS (2)
  1. ALTACE [Suspect]
     Route: 048
  2. ANTIBIOTICS [Interacting]

REACTIONS (2)
  - ANGIOEDEMA [None]
  - DRUG INTERACTION [None]
